FAERS Safety Report 4341079-5 (Version None)
Quarter: 2004Q2

REPORT INFORMATION
  Report Type: 
  Country: None (occurrence: None)
  Receive Date: 20040419
  Receipt Date: 20031127
  Transmission Date: 20050107
  Serious: Yes (Hospitalization)
  Sender: FDA-Public Use
  Company Number: IT-ROCHE-352904

PATIENT
  Age: 47 Year
  Sex: Male
  Weight: 85 kg

DRUGS (8)
  1. ENFUVIRTIDE [Suspect]
     Indication: HIV INFECTION
     Route: 058
  2. NEVIRAPINE [Concomitant]
     Dates: start: 20031001
  3. AMPRENAVIR [Concomitant]
     Dates: start: 20031001
  4. RITONAVIR [Concomitant]
     Dates: start: 20031001
  5. RISPERIDONE [Concomitant]
  6. LORAZEPAM [Concomitant]
  7. FENOBARBITAL [Concomitant]
  8. TRIMETHOPRIM + SULFAMETHOXAZOLE [Concomitant]

REACTIONS (2)
  - PNEUMONIA [None]
  - PYREXIA [None]
